FAERS Safety Report 7769521-8 (Version None)
Quarter: 2011Q3

REPORT INFORMATION
  Report Type: 
  Country: None (occurrence: None)
  Receive Date: 20110922
  Receipt Date: 20100621
  Transmission Date: 20111222
  Serious: No
  Sender: FDA-Public Use
  Company Number: US-ASTRAZENECA-2010SE07085

PATIENT
  Age: 48 Year
  Sex: Female
  Weight: 103.4 kg

DRUGS (1)
  1. SEROQUEL [Suspect]
     Route: 048

REACTIONS (5)
  - CHILLS [None]
  - COUGH [None]
  - WEIGHT INCREASED [None]
  - DECREASED APPETITE [None]
  - DRUG DOSE OMISSION [None]
